FAERS Safety Report 10242868 (Version 1)
Quarter: 2014Q2

REPORT INFORMATION
  Report Type: Spontaneous
  Country: US (occurrence: US)
  Receive Date: 20140618
  Receipt Date: 20140618
  Transmission Date: 20141212
  Serious: Yes (Hospitalization)
  Sender: FDA-Public Use
  Company Number: US-AMGEN INC.-USASP2014045222

PATIENT
  Age: 76 Year
  Sex: Female

DRUGS (1)
  1. ENBREL [Suspect]
     Indication: RHEUMATOID ARTHRITIS
     Dosage: 50 MG, QWK
     Route: 065
     Dates: start: 20120713

REACTIONS (9)
  - Abdominal discomfort [Recovered/Resolved]
  - Hospitalisation [Recovered/Resolved]
  - Oxygen saturation decreased [Recovered/Resolved]
  - Pain in extremity [Not Recovered/Not Resolved]
  - Mobility decreased [Not Recovered/Not Resolved]
  - Visual impairment [Not Recovered/Not Resolved]
  - Injection site pain [Recovered/Resolved]
  - Injection site bruising [Recovered/Resolved]
  - Injection site reaction [Recovered/Resolved]
